FAERS Safety Report 4453296-4 (Version None)
Quarter: 2004Q3

REPORT INFORMATION
  Report Type: 
  Country: None (occurrence: None)
  Receive Date: 20040920
  Receipt Date: 20040721
  Transmission Date: 20050211
  Serious: Yes (Hospitalization)
  Sender: FDA-Public Use
  Company Number: JP-MERCK-0407USA02168

PATIENT
  Age: 31 Year
  Sex: Female

DRUGS (4)
  1. DIHYDROERGOTAMINE MESYLATE [Concomitant]
     Route: 065
  2. MIGRISTENE [Concomitant]
     Route: 048
     Dates: start: 20000101, end: 20040716
  3. MAXALT [Suspect]
     Indication: MIGRAINE
     Route: 048
     Dates: start: 20040716, end: 20040716
  4. SELBEX [Concomitant]
     Route: 048
     Dates: start: 20000101, end: 20040716

REACTIONS (10)
  - ASTHENIA [None]
  - CEREBROVASCULAR DISORDER [None]
  - DRUG LEVEL INCREASED [None]
  - DYSSTASIA [None]
  - FEELING ABNORMAL [None]
  - HYPOAESTHESIA [None]
  - MONOPLEGIA [None]
  - PAIN IN EXTREMITY [None]
  - SPASTIC PARALYSIS [None]
  - VASOSPASM [None]
